FAERS Safety Report 6247585-0 (Version None)
Quarter: 2009Q2

REPORT INFORMATION
  Report Type: 
  Country: None (occurrence: None)
  Receive Date: 20090626
  Receipt Date: 20090623
  Transmission Date: 20091009
  Serious: Yes (Hospitalization)
  Sender: FDA-Public Use
  Company Number: US-MERCK-0906USA04776

PATIENT
  Sex: Female

DRUGS (1)
  1. INVANZ [Suspect]
     Indication: ABDOMINAL INFECTION
     Route: 065

REACTIONS (1)
  - CLOSTRIDIAL INFECTION [None]
